FAERS Safety Report 4748689-1 (Version None)
Quarter: 2005Q3

REPORT INFORMATION
  Report Type: 
  Country: None (occurrence: None)
  Receive Date: 20050819
  Receipt Date: 20050113
  Transmission Date: 20060218
  Serious: Yes (Other)
  Sender: FDA-Public Use
  Company Number: ESWYE345717JAN05

PATIENT
  Age: 70 Year
  Sex: Male

DRUGS (1)
  1. ENBREL [Suspect]
     Indication: ANKYLOSING SPONDYLITIS
     Dosage: UNKNOWN
     Route: 058
     Dates: start: 20020801, end: 20040801

REACTIONS (3)
  - ANGIOTENSIN CONVERTING ENZYME INCREASED [None]
  - CUTANEOUS SARCOIDOSIS [None]
  - HILAR LYMPHADENOPATHY [None]
